FAERS Safety Report 5034906-X (Version None)
Quarter: 2006Q2

REPORT INFORMATION
  Report Type: 
  Country: None (occurrence: None)
  Receive Date: 20060627
  Receipt Date: 20060621
  Transmission Date: 20061013
  Serious: Yes (Death, Life-Threatening)
  Sender: FDA-Public Use
  Company Number: PHBS2006NO09339

PATIENT
  Age: 85 Year
  Sex: Male

DRUGS (3)
  1. ALBYL-E [Suspect]
     Dosage: 160 MG, QD
     Route: 048
     Dates: start: 20060201
  2. ACETAMINOPHEN [Suspect]
     Indication: ANALGESIC THERAPY
     Dosage: 1 G, QID
     Route: 048
  3. VOLTAREN [Suspect]
     Indication: ANALGESIC THERAPY
     Dosage: 50 MG, TID
     Route: 048
     Dates: start: 20060522

REACTIONS (12)
  - ANAEMIA [None]
  - DRUG INTERACTION [None]
  - GASTRIC HAEMORRHAGE [None]
  - GASTRIC ULCER [None]
  - GASTRITIS EROSIVE [None]
  - GENERAL PHYSICAL HEALTH DETERIORATION [None]
  - HAEMATEMESIS [None]
  - HYPOTENSION [None]
  - MELAENA [None]
  - PNEUMONIA ASPIRATION [None]
  - SEPSIS [None]
  - SOMNOLENCE [None]
